FAERS Safety Report 18108720 (Version 1)
Quarter: 2020Q3

REPORT INFORMATION
  Report Type: Spontaneous
  Country: US (occurrence: US)
  Receive Date: 20200804
  Receipt Date: 20200804
  Transmission Date: 20201103
  Serious: Yes (Other)
  Sender: FDA-Public Use
  Company Number: None

PATIENT
  Age: 36 Year
  Sex: Male
  Weight: 78.75 kg

DRUGS (2)
  1. MULTIVITAMIN [Concomitant]
     Active Substance: VITAMINS
  2. ANTI?BAC HAND SANITIZER [Suspect]
     Active Substance: ALCOHOL
     Indication: INFECTION PROPHYLAXIS
     Dosage: ?          OTHER FREQUENCY:10+ TIMES DAILY;?
     Route: 061
     Dates: start: 20200518, end: 20200727

REACTIONS (6)
  - Restless legs syndrome [None]
  - Headache [None]
  - Insomnia [None]
  - Recalled product administered [None]
  - Nervous system disorder [None]
  - Paraesthesia [None]

NARRATIVE: CASE EVENT DATE: 20200525
